FAERS Safety Report 17778387 (Version 1)
Quarter: 2020Q2

REPORT INFORMATION
  Report Type: Spontaneous
  Country: PL (occurrence: PL)
  Receive Date: 20200513
  Receipt Date: 20200513
  Transmission Date: 20200714
  Serious: Yes (Life-Threatening)
  Sender: FDA-Public Use
  Company Number: NVSC2020PL129351

PATIENT
  Sex: Female
  Weight: 93 kg

DRUGS (1)
  1. TEGRETOL [Suspect]
     Active Substance: CARBAMAZEPINE
     Indication: PRODUCT USED FOR UNKNOWN INDICATION
     Dosage: 200 MG (ABOUT 10 TABLETS, AT 10 AM)
     Route: 065

REACTIONS (5)
  - Balance disorder [Recovered/Resolved]
  - Suicide attempt [Unknown]
  - Depressed mood [Recovered/Resolved]
  - Somnolence [Recovered/Resolved]
  - Psychomotor retardation [Recovered/Resolved]
